FAERS Safety Report 14986032 (Version 1)
Quarter: 2018Q2

REPORT INFORMATION
  Report Type: Report from Study
  Country: US (occurrence: US)
  Receive Date: 20180607
  Receipt Date: 20180607
  Transmission Date: 20180711
  Serious: Yes (Other)
  Sender: FDA-Public Use
  Company Number: US-ELI_LILLY_AND_COMPANY-US201806000788

PATIENT

DRUGS (7)
  1. GEMCITABINE HYDROCHLORIDE. [Suspect]
     Active Substance: GEMCITABINE HYDROCHLORIDE
     Dosage: UNK UNK, CYCLICAL
     Route: 050
  2. AMIFOSTINE. [Concomitant]
     Active Substance: AMIFOSTINE
     Dosage: 500 MG/M2, CYCLICAL
     Route: 042
  3. SODIUM THIOSULFATE [Concomitant]
     Active Substance: SODIUM THIOSULFATE
     Indication: CHEMOTHERAPY CYTOKINE PROPHYLAXIS
     Dosage: 4000 MG/M2, CYCLICAL
     Route: 042
  4. SODIUM THIOSULFATE [Concomitant]
     Active Substance: SODIUM THIOSULFATE
     Dosage: 12000 MG/KG, CYCLICAL
     Route: 042
  5. AMIFOSTINE. [Concomitant]
     Active Substance: AMIFOSTINE
     Indication: CHEMOTHERAPY CYTOKINE PROPHYLAXIS
     Dosage: 910 MG/M2, CYCLICAL
     Route: 042
  6. CISPLATIN. [Suspect]
     Active Substance: CISPLATIN
     Indication: PLEURAL MESOTHELIOMA MALIGNANT
     Dosage: 225 MG/M2, CYCLICAL
     Route: 050
  7. GEMCITABINE HYDROCHLORIDE. [Suspect]
     Active Substance: GEMCITABINE HYDROCHLORIDE
     Indication: PLEURAL MESOTHELIOMA MALIGNANT
     Dosage: 100 MG/M2, CYCLICAL
     Route: 050

REACTIONS (2)
  - Renal failure [Recovering/Resolving]
  - Toxicity to various agents [Unknown]
